FAERS Safety Report 4429744-2 (Version None)
Quarter: 2004Q3

REPORT INFORMATION
  Report Type: 
  Country: None (occurrence: None)
  Receive Date: 20040816
  Receipt Date: 20040804
  Transmission Date: 20050211
  Serious: Yes (Hospitalization)
  Sender: FDA-Public Use
  Company Number: STA-AE-04-MTX-346

PATIENT
  Age: 63 Year
  Sex: Female

DRUGS (3)
  1. METHOTREXATE [Suspect]
     Indication: RHEUMATOID ARTHRITIS
     Dosage: 20 MG 1 X PER 1 WK, ORAL
     Route: 048
     Dates: start: 19880101
  2. PREDNISONE TAB [Suspect]
     Indication: RHEUMATOID ARTHRITIS
     Dosage: 10 MG 1 X PER 1 DAY, ORAL
     Route: 048
     Dates: start: 19880101
  3. REMICADE [Suspect]
     Indication: RHEUMATOID ARTHRITIS
     Dosage: 250 MG 1 X PER 8 WK, INTRAVENOUS
     Route: 042
     Dates: start: 20020208, end: 20040301

REACTIONS (5)
  - CHEST X-RAY ABNORMAL [None]
  - DRUG INTERACTION [None]
  - IMPLANT SITE INFECTION [None]
  - SEPTIC ARTHRITIS STAPHYLOCOCCAL [None]
  - STAPHYLOCOCCAL SEPSIS [None]
